FAERS Safety Report 8281926-8 (Version None)
Quarter: 2012Q2

REPORT INFORMATION
  Report Type: 
  Country: None (occurrence: None)
  Receive Date: 20120413
  Receipt Date: 20120405
  Transmission Date: 20120825
  Serious: Yes (Other)
  Sender: FDA-Public Use
  Company Number: IN-JNJFOC-20120403369

PATIENT
  Age: 35 Year
  Sex: Female

DRUGS (6)
  1. CLOZAPINE [Interacting]
     Indication: SCHIZOPHRENIA
     Route: 065
  2. RISPERIDONE [Suspect]
     Indication: PSYCHOTIC DISORDER
     Route: 048
  3. VALPROATE SODIUM [Interacting]
     Indication: SCHIZOPHRENIA
     Route: 065
  4. RISPERIDONE [Suspect]
     Route: 048
  5. CLOZAPINE [Interacting]
     Route: 065
  6. CLOZAPINE [Interacting]
     Route: 065

REACTIONS (2)
  - DRUG INTERACTION [None]
  - ASTERIXIS [None]
